FAERS Safety Report 19383404 (Version 1)
Quarter: 2021Q2

REPORT INFORMATION
  Report Type: Spontaneous
  Country: US (occurrence: US)
  Receive Date: 20210607
  Receipt Date: 20210607
  Transmission Date: 20210717
  Serious: No
  Sender: FDA-Public Use
  Company Number: US-GALDERMA-US2021008988

PATIENT
  Age: 69 Year
  Sex: Female

DRUGS (3)
  1. CLINDAMYCIN OINTMENT [Concomitant]
     Indication: ACNE
     Route: 061
     Dates: start: 20210412
  2. DIFFERIN GEL [Suspect]
     Active Substance: ADAPALENE
     Indication: ACNE
     Dosage: 0.1%
     Route: 061
     Dates: start: 202008
  3. DIFFERIN GEL [Suspect]
     Active Substance: ADAPALENE
     Indication: MILIA

REACTIONS (3)
  - Skin discolouration [Not Recovered/Not Resolved]
  - Product use in unapproved indication [Recovered/Resolved]
  - Drug ineffective for unapproved indication [Recovered/Resolved]

NARRATIVE: CASE EVENT DATE: 202008
